FAERS Safety Report 22518777 (Version 1)
Quarter: 2023Q2

REPORT INFORMATION
  Report Type: Spontaneous
  Country: PT (occurrence: PT)
  Receive Date: 20230605
  Receipt Date: 20230605
  Transmission Date: 20230722
  Serious: Yes (Other)
  Sender: FDA-Public Use
  Company Number: None

PATIENT
  Age: 62 Year
  Sex: Male

DRUGS (1)
  1. CEFAZOLIN [Suspect]
     Active Substance: CEFAZOLIN
     Indication: Antibiotic prophylaxis
     Route: 042

REACTIONS (4)
  - Dysphonia [Recovered/Resolved]
  - Conjunctivitis [Recovered/Resolved]
  - Nasal congestion [Recovered/Resolved]
  - Obstructive airways disorder [Recovered/Resolved]
